FAERS Safety Report 8238316-3 (Version None)
Quarter: 2012Q1

REPORT INFORMATION
  Report Type: 
  Country: None (occurrence: None)
  Receive Date: 20120327
  Receipt Date: 20120319
  Transmission Date: 20120608
  Serious: Yes (Other)
  Sender: FDA-Public Use
  Company Number: US-JNJFOC-20120310207

PATIENT
  Sex: Male

DRUGS (2)
  1. BENADRYL [Suspect]
     Indication: PRURITUS
     Route: 065
  2. BENADRYL [Suspect]
     Indication: ADVERSE DRUG REACTION
     Route: 065

REACTIONS (2)
  - OFF LABEL USE [None]
  - HALLUCINATION [None]
